FAERS Safety Report 7765295-5 (Version None)
Quarter: 2011Q3

REPORT INFORMATION
  Report Type: 
  Country: None (occurrence: None)
  Receive Date: 20110921
  Receipt Date: 20110915
  Transmission Date: 20111222
  Serious: Yes (Other)
  Sender: FDA-Public Use
  Company Number: IN-ROXANE LABORATORIES, INC.-2011-RO-01290RO

PATIENT
  Age: 79 Year

DRUGS (3)
  1. RAMIPRIL [Suspect]
     Indication: HYPERTENSION
     Dates: start: 20040101
  2. LOSARTAN POTASSIUM [Suspect]
     Indication: HYPERTENSION
     Dates: start: 20050101
  3. TEMISARTAN [Suspect]
     Indication: HYPERTENSION
     Dates: start: 20050301

REACTIONS (3)
  - TONGUE GEOGRAPHIC [None]
  - AGEUSIA [None]
  - TOOTH ABSCESS [None]
